FAERS Safety Report 9108474 (Version 1)
Quarter: 2013Q1

REPORT INFORMATION
  Report Type: Report from Study
  Country: BR (occurrence: BR)
  Receive Date: 20130222
  Receipt Date: 20130222
  Transmission Date: 20140127
  Serious: Yes (Hospitalization, Other)
  Sender: FDA-Public Use
  Company Number: BR-ABBOTT-13P-020-1052572-00

PATIENT
  Sex: Female
  Weight: 71 kg

DRUGS (5)
  1. HUMIRA [Suspect]
     Indication: RHEUMATOID ARTHRITIS
     Route: 058
     Dates: start: 20080801, end: 201108
  2. HUMIRA [Suspect]
  3. PREDNISONE [Suspect]
     Indication: PAIN
     Dosage: AS NEEDED IN CASE OF INTENSE PAIN
     Route: 048
     Dates: start: 1999
  4. TYLEX [Concomitant]
     Indication: PAIN
     Route: 048
     Dates: start: 201212, end: 201301
  5. OMEPRAZOLE [Concomitant]
     Indication: GASTRIC DISORDER
     Route: 048
     Dates: start: 2012

REACTIONS (3)
  - Otosclerosis [Recovered/Resolved]
  - Nasal septum deviation [Recovered/Resolved]
  - Epistaxis [Recovered/Resolved]
